FAERS Safety Report 8902458 (Version 2)
Quarter: 2012Q4

REPORT INFORMATION
  Report Type: Report from Study
  Country: CA (occurrence: CA)
  Receive Date: 20121112
  Receipt Date: 20121120
  Transmission Date: 20130627
  Serious: Yes (Other)
  Sender: FDA-Public Use
  Company Number: CA-ROCHE-1154189

PATIENT
  Sex: Male

DRUGS (2)
  1. TRASTUZUMAB [Suspect]
     Indication: GASTRIC CANCER
     Route: 065
     Dates: start: 20120118, end: 201202
  2. CAPECITABINE [Suspect]
     Indication: GASTRIC CANCER
     Route: 065
     Dates: start: 20120118, end: 201202

REACTIONS (1)
  - Toxicity to various agents [Unknown]
